FAERS Safety Report 7807886-9 (Version None)
Quarter: 2011Q4

REPORT INFORMATION
  Report Type: 
  Country: None (occurrence: None)
  Receive Date: 20111011
  Receipt Date: 20110926
  Transmission Date: 20120403
  Serious: Yes (Hospitalization, Other)
  Sender: FDA-Public Use
  Company Number: PL-WATSON-2011-16056

PATIENT
  Age: 76 Year
  Sex: Male

DRUGS (2)
  1. ZOPICLONE (UNKNOWN) [Suspect]
     Indication: PRODUCT USED FOR UNKNOWN INDICATION
     Dosage: UNK
  2. INDAPAMIDE [Suspect]
     Indication: PRODUCT USED FOR UNKNOWN INDICATION

REACTIONS (5)
  - LOSS OF CONSCIOUSNESS [None]
  - ALTERED STATE OF CONSCIOUSNESS [None]
  - CONVULSION [None]
  - HYPONATRAEMIA [None]
  - DRUG ABUSE [None]
